FAERS Safety Report 4429725-9 (Version None)
Quarter: 2004Q3

REPORT INFORMATION
  Report Type: 
  Country: None (occurrence: None)
  Receive Date: 20040820
  Receipt Date: 20040812
  Transmission Date: 20050211
  Serious: Yes (Hospitalization)
  Sender: FDA-Public Use
  Company Number: GB-JNJFOC-20040804023

PATIENT
  Sex: Female

DRUGS (8)
  1. REMICADE [Suspect]
     Route: 042
  2. REMICADE [Suspect]
     Indication: RHEUMATOID ARTHRITIS
     Dosage: FROM 180MG - 170MG
     Route: 042
  3. METHOTREXATE [Concomitant]
  4. ZANTAC [Concomitant]
  5. MELOXICAM [Concomitant]
  6. SULFASALAZINE [Concomitant]
  7. PREDNISOLONE [Concomitant]
  8. THYROXINE [Concomitant]

REACTIONS (5)
  - HEADACHE [None]
  - PARAESTHESIA [None]
  - PARAESTHESIA ORAL [None]
  - PERIORBITAL DISORDER [None]
  - VOMITING [None]
